FAERS Safety Report 18065413 (Version 1)
Quarter: 2020Q3

REPORT INFORMATION
  Report Type: Spontaneous
  Country: AL (occurrence: AL)
  Receive Date: 20200724
  Receipt Date: 20200724
  Transmission Date: 20201103
  Serious: Yes (Hospitalization, Other)
  Sender: FDA-Public Use
  Company Number: AL-LUPIN PHARMACEUTICALS INC.-2020-03546

PATIENT
  Age: 66 Year
  Sex: Male

DRUGS (1)
  1. LAMIVUDINE. [Suspect]
     Active Substance: LAMIVUDINE
     Indication: CHRONIC HEPATITIS
     Dosage: UNK
     Route: 065

REACTIONS (1)
  - Suicide attempt [Unknown]
